FAERS Safety Report 13278198 (Version 1)
Quarter: 2017Q1

REPORT INFORMATION
  Report Type: Spontaneous
  Country: FR (occurrence: FR)
  Receive Date: 20170228
  Receipt Date: 20170228
  Transmission Date: 20170428
  Serious: Yes (Other)
  Sender: FDA-Public Use
  Company Number: FR-B. BRAUN MEDICAL INC.-1063689

PATIENT
  Age: 12 Month
  Sex: Male
  Weight: 14 kg

DRUGS (4)
  1. NALBUPHINE HYDROCHLORIDE. [Suspect]
     Active Substance: NALBUPHINE HYDROCHLORIDE
     Route: 041
     Dates: start: 20160123, end: 20160124
  2. DEXTROSE INJECTIONS USP 0264-7510-00 0264-7510-20 [Suspect]
     Active Substance: DEXTROSE
     Indication: GLOSSODYNIA
     Route: 041
     Dates: start: 20160123, end: 20160124
  3. CALCIUM GLUCONATE. [Suspect]
     Active Substance: CALCIUM GLUCONATE
     Route: 041
     Dates: start: 20160123, end: 20160124
  4. PERFALGAN [Suspect]
     Active Substance: ACETAMINOPHEN
     Route: 041
     Dates: start: 20160123, end: 20160124

REACTIONS (2)
  - Injection site oedema [Recovered/Resolved]
  - Injection site extravasation [Recovered/Resolved]

NARRATIVE: CASE EVENT DATE: 20160124
